FAERS Safety Report 21893087 (Version 1)
Quarter: 2023Q1

REPORT INFORMATION
  Report Type: Spontaneous
  Country: US (occurrence: US)
  Receive Date: 20230121
  Receipt Date: 20230121
  Transmission Date: 20230417
  Serious: No
  Sender: FDA-Public Use
  Company Number: US-UNITED THERAPEUTICS-UNT-2023-001656

PATIENT
  Age: 70 Year
  Sex: Male
  Weight: 93.878 kg

DRUGS (3)
  1. TYVASO DPI [Suspect]
     Active Substance: TREPROSTINIL
     Indication: Pulmonary arterial hypertension
     Dosage: 64 ?G, QID
  2. TYVASO DPI [Suspect]
     Active Substance: TREPROSTINIL
     Dosage: UNK
     Dates: start: 20221208
  3. TYVASO DPI [Suspect]
     Active Substance: TREPROSTINIL
     Indication: Pulmonary arterial hypertension
     Dosage: UNK

REACTIONS (8)
  - Dyspnoea [Unknown]
  - Malaise [Unknown]
  - Lung disorder [Unknown]
  - Condition aggravated [Unknown]
  - Oxygen saturation decreased [Unknown]
  - Fatigue [Unknown]
  - Gait disturbance [Unknown]
  - Dry mouth [Unknown]

NARRATIVE: CASE EVENT DATE: 20230101
